FAERS Safety Report 5042411-X (Version None)
Quarter: 2006Q2

REPORT INFORMATION
  Report Type: 
  Country: None (occurrence: None)
  Receive Date: 20060627
  Receipt Date: 20060614
  Transmission Date: 20061013
  Serious: Yes (Hospitalization)
  Sender: FDA-Public Use
  Company Number: 200610580BFR

PATIENT
  Age: 52 Year
  Sex: Female

DRUGS (2)
  1. SORAFENIB [Suspect]
     Indication: METASTATIC MALIGNANT MELANOMA
     Dosage: 800 MG, TOTAL DAILY, ORAL
     Route: 048
  2. DACARBAZINE [Suspect]
     Indication: METASTATIC MALIGNANT MELANOMA
     Dosage: Q3WK, INTRAVENOUS
     Route: 042

REACTIONS (2)
  - ASTHENIA [None]
  - PAIN [None]
